FAERS Safety Report 8563784-7 (Version None)
Quarter: 2012Q3

REPORT INFORMATION
  Report Type: 
  Country: None (occurrence: None)
  Receive Date: 20120803
  Receipt Date: 20120215
  Transmission Date: 20120928
  Serious: Yes (Hospitalization)
  Sender: FDA-Public Use
  Company Number: US-BAYER-200942591NA

PATIENT
  Age: 31 Year
  Sex: Female
  Weight: 70 kg

DRUGS (8)
  1. YAZ [Suspect]
     Indication: PREMENSTRUAL SYNDROME
  2. YASMIN [Suspect]
     Indication: PRODUCT USED FOR UNKNOWN INDICATION
     Dosage: 1 DF (DAILY DOSE), QD, ORAL
     Route: 048
     Dates: start: 20071101
  3. YAZ [Suspect]
     Indication: MENSTRUAL CYCLE MANAGEMENT
  4. VAGISIL [Concomitant]
     Indication: FUNGAL INFECTION
     Dates: start: 20071101, end: 20071115
  5. LOESTRIN 1.5/30 [Concomitant]
  6. KETOPROFEN [Concomitant]
     Indication: DYSMENORRHOEA
     Dosage: 75 MG (DAILY DOSE), ,
     Dates: start: 19900101, end: 20070615
  7. KETOPROFEN [Concomitant]
     Dates: start: 20080116
  8. YAZ [Suspect]
     Indication: ACNE
     Dates: start: 20071101, end: 20071201

REACTIONS (6)
  - DEEP VEIN THROMBOSIS [None]
  - PAIN IN EXTREMITY [None]
  - OEDEMA PERIPHERAL [None]
  - PULMONARY EMBOLISM [None]
  - DYSPNOEA [None]
  - PALPITATIONS [None]
